FAERS Safety Report 19645979 (Version 1)
Quarter: 2021Q3

REPORT INFORMATION
  Report Type: Spontaneous
  Country: CH (occurrence: CH)
  Receive Date: 20210802
  Receipt Date: 20210802
  Transmission Date: 20211014
  Serious: Yes (Death, Hospitalization, Other)
  Sender: FDA-Public Use
  Company Number: CH-ACCORD-233481

PATIENT
  Age: 68 Year
  Sex: Male

DRUGS (11)
  1. DURVALUMAB. [Concomitant]
     Active Substance: DURVALUMAB
     Indication: METASTASES TO LUNG
  2. CISPLATIN. [Suspect]
     Active Substance: CISPLATIN
     Indication: METASTASES TO LUNG
  3. ESOMEPRAZOLE. [Concomitant]
     Active Substance: ESOMEPRAZOLE MAGNESIUM
  4. CISPLATIN. [Suspect]
     Active Substance: CISPLATIN
     Indication: LUNG ADENOCARCINOMA STAGE IV
  5. ACETYLSALICYLIC ACID [Concomitant]
     Active Substance: ASPIRIN
  6. ETOPOSIDE. [Suspect]
     Active Substance: ETOPOSIDE
     Indication: METASTASES TO LUNG
  7. BISOPROLOL [Concomitant]
     Active Substance: BISOPROLOL
  8. ATORVASTATIN [Concomitant]
     Active Substance: ATORVASTATIN
     Indication: HYPERCHOLESTEROLAEMIA
  9. DURVALUMAB. [Concomitant]
     Active Substance: DURVALUMAB
     Indication: METASTASES TO THE MEDIASTINUM
  10. ETOPOSIDE. [Suspect]
     Active Substance: ETOPOSIDE
     Indication: LUNG ADENOCARCINOMA STAGE IV
  11. ENOXAPARIN [Concomitant]
     Active Substance: ENOXAPARIN
     Indication: THROMBOSIS PROPHYLAXIS
     Route: 058

REACTIONS (8)
  - Haematemesis [Fatal]
  - Syncope [Fatal]
  - Hypotension [Fatal]
  - Arteriovenous fistula site complication [Fatal]
  - Hypoxia [Fatal]
  - Aorto-oesophageal fistula [Fatal]
  - Shock haemorrhagic [Fatal]
  - Necrosis [Fatal]
